FAERS Safety Report 16955954 (Version 9)
Quarter: 2022Q4

REPORT INFORMATION
  Report Type: Report from Study
  Country: AU (occurrence: AU)
  Receive Date: 20191024
  Receipt Date: 20221116
  Transmission Date: 20230112
  Serious: Yes (Hospitalization)
  Sender: FDA-Public Use
  Company Number: NVSC2019AU012863

PATIENT
  Age: 53 Year
  Sex: Female
  Weight: 76.7 kg

DRUGS (14)
  1. CANAKINUMAB [Suspect]
     Active Substance: CANAKINUMAB
     Indication: Triple negative breast cancer
     Dosage: 600 MG
     Route: 058
     Dates: start: 20190614
  2. IERAMILIMAB [Suspect]
     Active Substance: IERAMILIMAB
     Indication: Triple negative breast cancer
     Dosage: 600 MG
     Route: 042
     Dates: start: 20190614
  3. SPARTALIZUMAB [Suspect]
     Active Substance: SPARTALIZUMAB
     Indication: Triple negative breast cancer
     Dosage: 400 MG
     Route: 042
     Dates: start: 20190614
  4. ASPIRIN [Concomitant]
     Active Substance: ASPIRIN
     Indication: Hypertension
     Dosage: UNK
     Route: 065
     Dates: start: 2009
  5. CANDESARTAN CILEXETIL [Concomitant]
     Active Substance: CANDESARTAN CILEXETIL
     Indication: Hypertension
     Dosage: UNK
     Route: 065
     Dates: start: 2009
  6. CRESTOR [Concomitant]
     Active Substance: ROSUVASTATIN CALCIUM
     Indication: Hypercholesterolaemia
     Dosage: UNK
     Route: 065
     Dates: start: 2009
  7. INSULIN ASPART [Concomitant]
     Active Substance: INSULIN ASPART
     Indication: Diabetes mellitus
     Dosage: UNK
     Route: 065
     Dates: start: 2001
  8. LYRICA [Concomitant]
     Active Substance: PREGABALIN
     Indication: Back pain
     Dosage: UNK
     Route: 065
     Dates: start: 201905, end: 20200203
  9. LORAZEPAM [Concomitant]
     Active Substance: LORAZEPAM
     Indication: Depression
     Dosage: UNK
     Route: 065
     Dates: start: 201905
  10. LORAZEPAM [Concomitant]
     Active Substance: LORAZEPAM
     Indication: Anxiety
  11. DOCUSATE [Concomitant]
     Active Substance: DOCUSATE
     Indication: Constipation prophylaxis
     Dosage: UNK
     Route: 065
     Dates: start: 201905
  12. SENNOSIDE B [Concomitant]
     Active Substance: SENNOSIDE B
     Indication: Constipation prophylaxis
     Dosage: UNK
     Route: 065
     Dates: start: 201905
  13. ACETAMINOPHEN [Concomitant]
     Active Substance: ACETAMINOPHEN
     Indication: Headache
     Dosage: UNK
     Route: 065
     Dates: start: 20190810, end: 20191113
  14. PANTOPRAZOLE [Concomitant]
     Active Substance: PANTOPRAZOLE
     Indication: Prophylaxis
     Dosage: UNK
     Route: 065
     Dates: start: 20191012, end: 20191014

REACTIONS (1)
  - Polyarthritis [Recovering/Resolving]

NARRATIVE: CASE EVENT DATE: 20191012
